FAERS Safety Report 6963373-1 (Version None)
Quarter: 2010Q3

REPORT INFORMATION
  Report Type: 
  Country: None (occurrence: None)
  Receive Date: 20100902
  Receipt Date: 20100819
  Transmission Date: 20110219
  Serious: Yes (Hospitalization)
  Sender: FDA-Public Use
  Company Number: A0877109A

PATIENT
  Sex: Male
  Weight: 27 kg

DRUGS (3)
  1. SERETIDE [Suspect]
     Indication: ASTHMA
     Dosage: 1PUFF TWICE PER DAY
     Route: 055
     Dates: start: 20080501
  2. SINGULAIR [Concomitant]
     Dosage: 1TAB PER DAY
     Route: 048
     Dates: start: 20080501
  3. NASONEX [Concomitant]
     Dosage: 1SPR TWICE PER DAY
     Route: 045
     Dates: start: 20100501

REACTIONS (3)
  - ASTHMATIC CRISIS [None]
  - COUGH [None]
  - DYSPNOEA [None]
